FAERS Safety Report 12382286 (Version 2)
Quarter: 2016Q2

REPORT INFORMATION
  Report Type: Spontaneous
  Country: CA (occurrence: CA)
  Receive Date: 20160518
  Receipt Date: 20160601
  Transmission Date: 20160815
  Serious: Yes (Other)
  Sender: FDA-Public Use
  Company Number: CA-TEVA-660974USA

PATIENT

DRUGS (3)
  1. METHOTREXATE [Suspect]
     Active Substance: METHOTREXATE
     Indication: ACUTE LYMPHOCYTIC LEUKAEMIA
     Dosage: SUPRATHERAPEUTIC DOSE RECEIVED VIA OMMAYA RESERVOIR
     Route: 065
  2. METHOTREXATE [Suspect]
     Active Substance: METHOTREXATE
     Dosage: SUPRATHERAPEUTIC DOSE RECEIVED VIA OMMAYA RESERVOIR
     Route: 065
  3. CYTARABINE. [Concomitant]
     Active Substance: CYTARABINE
     Indication: ACUTE LYMPHOCYTIC LEUKAEMIA
     Dosage: VIA OMMAYA RESERVOIR

REACTIONS (6)
  - Catheter site necrosis [Not Recovered/Not Resolved]
  - Memory impairment [Unknown]
  - Gastrointestinal haemorrhage [Not Recovered/Not Resolved]
  - Medication error [Unknown]
  - Colitis [Not Recovered/Not Resolved]
  - Toxicity to various agents [Unknown]
